FAERS Safety Report 4880610-8 (Version None)
Quarter: 2006Q1

REPORT INFORMATION
  Report Type: 
  Country: None (occurrence: None)
  Receive Date: 20060113
  Receipt Date: 20050804
  Transmission Date: 20060701
  Serious: Yes (Hospitalization, Disabling)
  Sender: FDA-Public Use
  Company Number: US-MERCK-0508USA01288

PATIENT
  Age: 59 Year
  Sex: Male
  Weight: 88 kg

DRUGS (10)
  1. VIOXX [Suspect]
     Indication: ARTHRALGIA
     Route: 048
     Dates: start: 20000301, end: 20000925
  2. VIOXX [Suspect]
     Route: 048
     Dates: start: 20021001, end: 20040901
  3. VIOXX [Suspect]
     Route: 048
     Dates: start: 20000301, end: 20000925
  4. VIOXX [Suspect]
     Route: 048
     Dates: start: 20021001, end: 20040901
  5. VIOXX [Suspect]
     Indication: BACK PAIN
     Route: 048
     Dates: start: 20000301, end: 20000925
  6. VIOXX [Suspect]
     Route: 048
     Dates: start: 20021001, end: 20040901
  7. VIOXX [Suspect]
     Route: 048
     Dates: start: 20000301, end: 20000925
  8. VIOXX [Suspect]
     Route: 048
     Dates: start: 20021001, end: 20040901
  9. ALLOPURINOL MSD [Concomitant]
     Route: 065
  10. ASPIRIN [Concomitant]
     Route: 065

REACTIONS (25)
  - ACROCHORDON [None]
  - ADVERSE EVENT [None]
  - ANXIETY [None]
  - ARTHRALGIA [None]
  - BRONCHITIS [None]
  - CARDIOVASCULAR DISORDER [None]
  - CEREBROVASCULAR ACCIDENT [None]
  - CHRONIC FATIGUE SYNDROME [None]
  - DRUG WITHDRAWAL SYNDROME [None]
  - HEPATIC ENZYME INCREASED [None]
  - HERPES SIMPLEX [None]
  - HYPERPLASIA [None]
  - INSOMNIA [None]
  - MELANOCYTIC NAEVUS [None]
  - MYALGIA [None]
  - NEOPLASM PROSTATE [None]
  - PAPILLOMA [None]
  - PHARYNGITIS [None]
  - PROSTATIC SPECIFIC ANTIGEN INCREASED [None]
  - PROSTATITIS [None]
  - SINUSITIS [None]
  - SKIN DEGENERATIVE DISORDER [None]
  - SNORING [None]
  - TRANSIENT ISCHAEMIC ATTACK [None]
  - UPPER RESPIRATORY TRACT INFECTION [None]
